FAERS Safety Report 9508376 (Version 2)
Quarter: 2013Q3

REPORT INFORMATION
  Report Type: Spontaneous
  Country: US (occurrence: US)
  Receive Date: 20130909
  Receipt Date: 20130927
  Transmission Date: 20140515
  Serious: Yes (Death, Other)
  Sender: FDA-Public Use
  Company Number: US-GILEAD-2013-0082815

PATIENT
  Sex: Female

DRUGS (4)
  1. LETAIRIS [Suspect]
     Indication: PULMONARY HYPERTENSION
     Dosage: 10 MG, QD
     Route: 048
     Dates: start: 20091023, end: 20130827
  2. LETAIRIS [Suspect]
     Indication: IDIOPATHIC PULMONARY FIBROSIS
  3. WARFARIN [Concomitant]
     Indication: PULMONARY HYPERTENSION
  4. AZATHIOPRINE [Concomitant]
     Indication: PULMONARY FIBROSIS

REACTIONS (1)
  - Acute respiratory failure [Fatal]
